FAERS Safety Report 7997331-5 (Version None)
Quarter: 2011Q4

REPORT INFORMATION
  Report Type: 
  Country: None (occurrence: None)
  Receive Date: 20111221
  Receipt Date: 20111213
  Transmission Date: 20120403
  Serious: Yes (Hospitalization, Other)
  Sender: FDA-Public Use
  Company Number: CO-JNJFOC-20111207679

PATIENT
  Sex: Male

DRUGS (1)
  1. SPORANOX [Suspect]
     Indication: HISTOPLASMOSIS
     Dosage: 20CC
     Route: 048
     Dates: start: 20110830

REACTIONS (5)
  - FATIGUE [None]
  - WEIGHT DECREASED [None]
  - NAUSEA [None]
  - PULMONARY OEDEMA [None]
  - DIARRHOEA [None]
